FAERS Safety Report 10098358 (Version 5)
Quarter: 2014Q3

REPORT INFORMATION
  Report Type: Spontaneous
  Country: CH (occurrence: CH)
  Receive Date: 20140423
  Receipt Date: 20140717
  Transmission Date: 20150326
  Serious: Yes (Hospitalization, Other)
  Sender: FDA-Public Use
  Company Number: CH-TEVA-431935ISR

PATIENT
  Age: 32 Year
  Sex: Female
  Weight: 55 kg

DRUGS (10)
  1. MUCO-MEPHA 600 MG BRAUSETABLETTE [Suspect]
     Active Substance: ACETYLCYSTEINE
     Indication: PNEUMONIA
     Dates: start: 20140203, end: 20140206
  2. CITALOPRAM-MEPHA [Suspect]
     Active Substance: CITALOPRAM HYDROBROMIDE
     Indication: ANXIETY DISORDER
     Dosage: 5MG TO 15MG DURING THE WHOLE PREGNANCY
     Route: 048
  3. ALUCOL  GEL [Concomitant]
     Active Substance: ALUMINUM HYDROXIDE\MAGNESIUM HYDROXIDE
     Dates: start: 2014
  4. OMEPRAZOLE. [Suspect]
     Active Substance: OMEPRAZOLE
     Indication: GASTROOESOPHAGEAL REFLUX DISEASE
     Dates: start: 20131030, end: 20140402
  5. TRAMAL [Concomitant]
     Active Substance: TRAMADOL
     Indication: RIB FRACTURE
     Dosage: 20 GTT DAILY; DURING 3RD TRIMESTER OF PREGNANCY
     Route: 065
     Dates: start: 20140215, end: 20140218
  6. TRIOFAN [Concomitant]
     Active Substance: XYLOMETAZOLINE
     Dosage: DURING 2ND TRIMESTER OF PREGNANCY
     Route: 065
  7. CO-AMOXI-MEPHA 1000 [Suspect]
     Active Substance: AMOXICILLIN\CLAVULANATE POTASSIUM
     Indication: PNEUMONIA
     Dosage: DURING 2ND TRIMESTER OF PREGNANCY
     Route: 065
     Dates: start: 20140203, end: 20140209
  8. DAFALGAN [Concomitant]
     Active Substance: ACETAMINOPHEN
     Indication: RIB FRACTURE
     Dosage: DURING 3RD TRIMESTER OF PREGNANCY
     Route: 065
     Dates: start: 20140214, end: 20140219
  9. SYMBICORT [Concomitant]
     Active Substance: BUDESONIDE\FORMOTEROL FUMARATE DIHYDRATE
     Dosage: DURING 2ND AND 3RD TRIMESTER OF PREGNANCY
     Route: 065
  10. VENTOLIN [Concomitant]
     Active Substance: ALBUTEROL SULFATE
     Dosage: DURING 3RD TRIMESTER OF PREGNANCY
     Route: 065

REACTIONS (7)
  - Osteoporotic fracture [Recovered/Resolved]
  - Exposure during breast feeding [Unknown]
  - Gestational hypertension [Not Recovered/Not Resolved]
  - Pneumonia [Recovered/Resolved]
  - Inguinal hernia [Unknown]
  - Cough [Unknown]
  - Normal newborn [Recovered/Resolved]

NARRATIVE: CASE EVENT DATE: 2014
